FAERS Safety Report 8299476-1 (Version None)
Quarter: 2012Q2

REPORT INFORMATION
  Report Type: 
  Country: None (occurrence: None)
  Receive Date: 20120419
  Receipt Date: 20120412
  Transmission Date: 20120825
  Serious: Yes (Hospitalization)
  Sender: FDA-Public Use
  Company Number: JP-B.I. PHARMACEUTICALS,INC./RIDGEFIELD-2012-BP-06921NB

PATIENT

DRUGS (7)
  1. COMTAN [Concomitant]
     Indication: PARKINSON'S DISEASE
     Dosage: 600 MG
     Route: 048
     Dates: end: 20120301
  2. TEGRETOL [Concomitant]
     Indication: EPILEPSY
     Dosage: 400 MG
     Route: 048
  3. MADOPAR [Concomitant]
     Indication: PARKINSON'S DISEASE
     Dosage: 600 MG
     Route: 048
  4. PRAMIPEXOLE DIHYDROCHLORIDE [Suspect]
     Indication: PARKINSON'S DISEASE
     Dosage: 3 MG
     Route: 048
     Dates: end: 20120101
  5. PRAMIPEXOLE DIHYDROCHLORIDE [Suspect]
     Dosage: 3 MG
     Route: 048
     Dates: start: 20120301, end: 20120301
  6. MAGNESIUM OXIDE [Concomitant]
     Indication: CONSTIPATION
     Route: 048
     Dates: end: 20120301
  7. PRAMIPEXOLE DIHYDROCHLORIDE [Suspect]
     Dosage: 4.5 MG
     Route: 048
     Dates: start: 20120101, end: 20120301

REACTIONS (4)
  - DELIRIUM [None]
  - NEUROLEPTIC MALIGNANT SYNDROME [None]
  - PERSECUTORY DELUSION [None]
  - PNEUMONIA ASPIRATION [None]
